FAERS Safety Report 9542504 (Version 2)
Quarter: 2013Q3

REPORT INFORMATION
  Report Type: Spontaneous
  Country: US (occurrence: None)
  Receive Date: 20130918
  Receipt Date: 20130927
  Transmission Date: 20140515
  Serious: Yes (Disabling, Other)
  Sender: FDA-Public Use
  Company Number: AUR-APL-2013-07654

PATIENT
  Sex: Female

DRUGS (4)
  1. LEVOFLOXACIN [Suspect]
     Indication: PNEUMONIA
     Dates: start: 201308
  2. PREDNISONE (PREDNISONE) [Concomitant]
  3. CRESTOR (ROSUVASTATIN CALCIUM) [Concomitant]
  4. ESTROGEN (ESTRADIOL) [Concomitant]

REACTIONS (4)
  - Tendonitis [None]
  - Urticaria [None]
  - Mobility decreased [None]
  - Arthropathy [None]
